FAERS Safety Report 26187872 (Version 1)
Quarter: 2025Q4

REPORT INFORMATION
  Report Type: Spontaneous
  Country: US (occurrence: US)
  Receive Date: 20251222
  Receipt Date: 20251222
  Transmission Date: 20260118
  Serious: Yes (Hospitalization, Other)
  Sender: CSL BEHRING
  Company Number: US-BEH-2025229421

PATIENT
  Age: 32 Year
  Sex: Female

DRUGS (3)
  1. ALBUMINAR [Suspect]
     Active Substance: ALBUMIN HUMAN
     Indication: Postpartum haemorrhage
     Route: 065
  2. ALBUMINAR [Suspect]
     Active Substance: ALBUMIN HUMAN
     Indication: Haemorrhage
  3. ZOSYN [Suspect]
     Active Substance: PIPERACILLIN SODIUM\TAZOBACTAM SODIUM
     Indication: Infection
     Dosage: UNK
     Route: 042

REACTIONS (5)
  - Pulmonary embolism [Not Recovered/Not Resolved]
  - Peripheral vein thrombosis [Not Recovered/Not Resolved]
  - Chills [Unknown]
  - Feeling cold [Unknown]
  - Dizziness [Unknown]

NARRATIVE: CASE EVENT DATE: 20251201
